FAERS Safety Report 24584074 (Version 1)
Quarter: 2024Q4

REPORT INFORMATION
  Report Type: Report from Study
  Country: US (occurrence: US)
  Receive Date: 20241106
  Receipt Date: 20241106
  Transmission Date: 20250115
  Serious: Yes (Hospitalization, Other)
  Sender: ALEXION PHARMACEUTICALS
  Company Number: US-AstraZeneca-CH-00726137A

PATIENT

DRUGS (4)
  1. EXENATIDE [Suspect]
     Active Substance: EXENATIDE
     Dosage: UNK
  2. EXENATIDE [Suspect]
     Active Substance: EXENATIDE
     Dosage: UNK
  3. EXENATIDE [Suspect]
     Active Substance: EXENATIDE
     Dosage: UNK
  4. EXENATIDE [Suspect]
     Active Substance: EXENATIDE
     Dosage: UNK

REACTIONS (6)
  - Fall [Unknown]
  - Hip fracture [Unknown]
  - Multiple fractures [Unknown]
  - Knee arthroplasty [Unknown]
  - Lower limb fracture [Unknown]
  - Product use issue [Unknown]
